FAERS Safety Report 25300899 (Version 3)
Quarter: 2025Q2

REPORT INFORMATION
  Report Type: Spontaneous
  Country: US (occurrence: US)
  Receive Date: 20250512
  Receipt Date: 20250617
  Transmission Date: 20250717
  Serious: Yes (Hospitalization)
  Sender: MERCK SHARP & DOHME LLC
  Company Number: US-PFIZER INC-PV202500051869

PATIENT
  Age: 77 Year
  Sex: Male
  Weight: 82.1 kg

DRUGS (3)
  1. PEMBROLIZUMAB [Suspect]
     Active Substance: PEMBROLIZUMAB
     Indication: Squamous cell carcinoma of head and neck
     Dosage: 200 MG, EVERY 3 WEEKS (Q3W); THREE CYCLES
     Route: 042
     Dates: start: 20241114, end: 20241231
  2. SGN-PDL1V [Suspect]
     Active Substance: SGN-PDL1V
     Indication: Squamous cell carcinoma of head and neck
     Route: 042
     Dates: start: 20241114, end: 20250107
  3. PREDNISONE [Suspect]
     Active Substance: PREDNISONE
     Indication: Pneumonitis
     Dosage: UNK; STEROID TAPER
     Route: 042
     Dates: start: 20250128, end: 20250402

REACTIONS (2)
  - Acute respiratory failure [Recovered/Resolved]
  - Pyrexia [Recovered/Resolved]

NARRATIVE: CASE EVENT DATE: 20250423
